FAERS Safety Report 7558425-1 (Version None)
Quarter: 2011Q2

REPORT INFORMATION
  Report Type: 
  Country: None (occurrence: None)
  Receive Date: 20110620
  Receipt Date: 20110617
  Transmission Date: 20111010
  Serious: Yes (Death, Other)
  Sender: FDA-Public Use
  Company Number: PHEH2007US08749

PATIENT
  Sex: Female

DRUGS (17)
  1. AREDIA [Suspect]
     Dosage: UNK
     Dates: start: 20050101
  2. PREVACID [Concomitant]
     Dosage: 30 MG, QD
  3. OXYCODONE HCL [Concomitant]
  4. CELEBREX [Concomitant]
     Dosage: 200 MG, QD
  5. FASLODEX [Concomitant]
  6. REGLAN [Concomitant]
     Dosage: 10 MG, UNK
  7. TAMOXIFEN CITRATE [Concomitant]
     Dosage: UNK
     Dates: start: 19990801
  8. OXYCONTIN [Concomitant]
     Dosage: 30 MG, BID
  9. AROMASIN [Concomitant]
  10. DIGOXIN [Concomitant]
     Dosage: 0.25 MG, QD
  11. LEXAPRO [Concomitant]
     Dosage: 10 MG, UNK
  12. ROXICET [Concomitant]
     Dosage: UNK
     Dates: start: 20030901
  13. FEMARA [Concomitant]
     Dosage: 2.5 MG, UNK
  14. FLONASE [Concomitant]
  15. ZOMETA [Suspect]
     Indication: METASTASES TO BONE
     Dosage: UNK, UNK
     Dates: start: 20030218, end: 20050127
  16. RADIOTHERAPY [Concomitant]
     Indication: PELVIC FRACTURE
     Dosage: UNK
     Dates: start: 20030501
  17. ACETAMINOPHEN [Concomitant]

REACTIONS (17)
  - OSTEONECROSIS OF JAW [None]
  - GENERAL PHYSICAL HEALTH DETERIORATION [None]
  - INFECTION [None]
  - WEIGHT DECREASED [None]
  - DENTAL CARIES [None]
  - DEATH [None]
  - DECREASED INTEREST [None]
  - OSTEOLYSIS [None]
  - ATRIAL FLUTTER [None]
  - PAIN IN JAW [None]
  - DECREASED APPETITE [None]
  - EMOTIONAL DISTRESS [None]
  - NEOPLASM MALIGNANT [None]
  - IMPAIRED HEALING [None]
  - BONE DISORDER [None]
  - ANXIETY [None]
  - PAIN [None]
